FAERS Safety Report 7377586-0 (Version None)
Quarter: 2011Q1

REPORT INFORMATION
  Report Type: 
  Country: None (occurrence: None)
  Receive Date: 20110328
  Receipt Date: 20110321
  Transmission Date: 20110831
  Serious: Yes (Death, Life-Threatening, Hospitalization, Other)
  Sender: FDA-Public Use
  Company Number: IT-US-EMD SERONO, INC.-7047905

PATIENT
  Sex: Male

DRUGS (4)
  1. REBIF [Suspect]
     Indication: RELAPSING-REMITTING MULTIPLE SCLEROSIS
     Route: 058
     Dates: start: 20080403, end: 20110306
  2. EFFEXOR [Concomitant]
     Route: 048
     Dates: start: 20030101, end: 20110312
  3. DEPAKENE [Concomitant]
     Dates: start: 20061024, end: 20110312
  4. EFFEXOR [Concomitant]
     Dates: start: 20010101

REACTIONS (6)
  - HYDROCEPHALUS [None]
  - THROMBOCYTOPENIA [None]
  - PYREXIA [None]
  - CULTURE URINE POSITIVE [None]
  - CEREBRAL HAEMORRHAGE [None]
  - MALAISE [None]
